FAERS Safety Report 7694073-0 (Version None)
Quarter: 2011Q3

REPORT INFORMATION
  Report Type: 
  Country: None (occurrence: None)
  Receive Date: 20110819
  Receipt Date: 20110428
  Transmission Date: 20111222
  Serious: No
  Sender: FDA-Public Use
  Company Number: US-BAYER-2011-036791

PATIENT
  Age: 47 Year
  Sex: Female

DRUGS (1)
  1. MIRENA [Suspect]
     Indication: DYSFUNCTIONAL UTERINE BLEEDING
     Dosage: 20 MCG/24HR, CONT
     Route: 015

REACTIONS (3)
  - AMENORRHOEA [None]
  - METRORRHAGIA [None]
  - VAGINAL HAEMORRHAGE [None]
